FAERS Safety Report 21283896 (Version 5)
Quarter: 2023Q1

REPORT INFORMATION
  Report Type: Report from Study
  Country: FR (occurrence: FR)
  Receive Date: 20220901
  Receipt Date: 20230316
  Transmission Date: 20230417
  Serious: Yes (Other)
  Sender: FDA-Public Use
  Company Number: FR-GILEAD-2022-0586460

PATIENT
  Sex: Female
  Weight: 50 kg

DRUGS (9)
  1. SACITUZUMAB GOVITECAN-HZIY [Suspect]
     Active Substance: SACITUZUMAB GOVITECAN-HZIY
     Indication: Triple negative breast cancer
     Dosage: 10 MG/KG C1D1 AND C1D8
     Route: 042
     Dates: start: 20220208, end: 20220215
  2. SACITUZUMAB GOVITECAN-HZIY [Suspect]
     Active Substance: SACITUZUMAB GOVITECAN-HZIY
     Dosage: 470 MG (10 MG/KG) C2D1 AND C2D8
     Route: 042
     Dates: start: 20220301, end: 20220308
  3. SACITUZUMAB GOVITECAN-HZIY [Suspect]
     Active Substance: SACITUZUMAB GOVITECAN-HZIY
     Dosage: 470 MG (10 MG/KG) C3D1 AND C3D8
     Route: 042
     Dates: start: 20220322, end: 20220329
  4. SACITUZUMAB GOVITECAN-HZIY [Suspect]
     Active Substance: SACITUZUMAB GOVITECAN-HZIY
     Dosage: 470 MG (10MG/KG)  C4D1 AND C4D8
     Route: 042
     Dates: start: 20220420, end: 20220426
  5. SACITUZUMAB GOVITECAN-HZIY [Suspect]
     Active Substance: SACITUZUMAB GOVITECAN-HZIY
     Dosage: 10 MG/KG  C5D1 AND C5D8
     Route: 042
     Dates: start: 20220510, end: 20220517
  6. SACITUZUMAB GOVITECAN-HZIY [Suspect]
     Active Substance: SACITUZUMAB GOVITECAN-HZIY
     Dosage: 10 MG/KG  C6D1 AND C6D8
     Route: 042
     Dates: start: 20220531, end: 20220607
  7. SACITUZUMAB GOVITECAN-HZIY [Suspect]
     Active Substance: SACITUZUMAB GOVITECAN-HZIY
     Dosage: 8 MG/KG  C7D1 AND C7D8
     Route: 042
     Dates: start: 20220628, end: 20220705
  8. SACITUZUMAB GOVITECAN-HZIY [Suspect]
     Active Substance: SACITUZUMAB GOVITECAN-HZIY
     Dosage: 8 MG/KG  C8D1 AND C7D8
     Route: 042
     Dates: start: 20220719, end: 20220726
  9. SACITUZUMAB GOVITECAN-HZIY [Suspect]
     Active Substance: SACITUZUMAB GOVITECAN-HZIY
     Dosage: 8 MG/KG  C9D1 AND C7D8
     Route: 042
     Dates: start: 20220809, end: 20220816

REACTIONS (6)
  - Asthenia [Recovered/Resolved]
  - Asthenia [Unknown]
  - Disease progression [Unknown]
  - Fatigue [Unknown]
  - Inappropriate schedule of product administration [Recovered/Resolved]
  - Off label use [Unknown]

NARRATIVE: CASE EVENT DATE: 20220101
